FAERS Safety Report 16570942 (Version 1)
Quarter: 2019Q3

REPORT INFORMATION
  Report Type: Spontaneous
  Country: US (occurrence: US)
  Receive Date: 20190531
  Receipt Date: 20190531
  Transmission Date: 20191004
  Serious: No
  Sender: FDA-Public Use
  Company Number: None

PATIENT
  Age: 76 Year
  Sex: Female

DRUGS (1)
  1. IMATINIB 400MG TAB (X30) [Suspect]
     Active Substance: IMATINIB
     Route: 048
     Dates: start: 20190129

REACTIONS (2)
  - Diarrhoea [None]
  - Upper respiratory tract infection [None]

NARRATIVE: CASE EVENT DATE: 20190531
